FAERS Safety Report 9166655 (Version 1)
Quarter: 2013Q1

REPORT INFORMATION
  Report Type: Report from Study
  Country: US (occurrence: US)
  Receive Date: 20130315
  Receipt Date: 20130315
  Transmission Date: 20140127
  Serious: Yes (Death, Other)
  Sender: FDA-Public Use
  Company Number: US-ROCHE-1199339

PATIENT
  Sex: Female

DRUGS (10)
  1. TARCEVA [Suspect]
     Indication: BRONCHIAL CARCINOMA
     Route: 048
     Dates: start: 20120531
  2. TARCEVA [Suspect]
     Route: 048
  3. SOTALOL [Concomitant]
  4. PRAVASTATIN [Concomitant]
  5. POTASSIUM [Concomitant]
  6. LASIX [Concomitant]
  7. IPRATROPIUM [Concomitant]
  8. COUMADIN [Concomitant]
  9. ALBUTEROL [Concomitant]
  10. ADVAIR [Concomitant]

REACTIONS (4)
  - Thrombosis [Fatal]
  - Neoplasm malignant [Unknown]
  - Skin ulcer haemorrhage [Unknown]
  - Incorrect dose administered [Unknown]
